FAERS Safety Report 8211328-1 (Version None)
Quarter: 2012Q1

REPORT INFORMATION
  Report Type: 
  Country: None (occurrence: None)
  Receive Date: 20120315
  Receipt Date: 20120315
  Transmission Date: 20120608
  Serious: Yes (Life-Threatening, Hospitalization)
  Sender: FDA-Public Use
  Company Number: None

PATIENT
  Age: 65 Year
  Sex: Female
  Weight: 70.306 kg

DRUGS (1)
  1. BYSTOLIC [Suspect]
     Indication: HYPERTENSION
     Route: 048
     Dates: start: 20100520, end: 20120203

REACTIONS (7)
  - DYSPNOEA [None]
  - FALL [None]
  - HEART RATE DECREASED [None]
  - SINUS ARREST [None]
  - CARDIAC DISORDER [None]
  - DEVICE MALFUNCTION [None]
  - LOSS OF CONSCIOUSNESS [None]
